FAERS Safety Report 9262846 (Version 1)
Quarter: 2013Q2

REPORT INFORMATION
  Report Type: Spontaneous
  Country: US (occurrence: US)
  Receive Date: 20130430
  Receipt Date: 20130430
  Transmission Date: 20140414
  Serious: No
  Sender: FDA-Public Use
  Company Number: US-009507513-1304USA017389

PATIENT
  Sex: Male

DRUGS (2)
  1. ISENTRESS [Suspect]
     Dosage: 400 MG, BID
     Route: 048
  2. MUCINEX [Concomitant]

REACTIONS (2)
  - Dysphagia [Recovered/Resolved]
  - Dysphagia [Not Recovered/Not Resolved]
